FAERS Safety Report 14679641 (Version 2)
Quarter: 2018Q2

REPORT INFORMATION
  Report Type: Spontaneous
  Country: US (occurrence: US)
  Receive Date: 20180326
  Receipt Date: 20180402
  Transmission Date: 20180711
  Serious: No
  Sender: FDA-Public Use
  Company Number: US-ASTRAZENECA-2018SE29579

PATIENT
  Sex: Female
  Weight: 69.4 kg

DRUGS (2)
  1. BRILINTA [Suspect]
     Active Substance: TICAGRELOR
     Indication: STENT PLACEMENT
     Route: 048
     Dates: start: 20180301
  2. ASPIRIN. [Concomitant]
     Active Substance: ASPIRIN
     Indication: ADJUVANT THERAPY
     Route: 048

REACTIONS (6)
  - Intentional product misuse [Unknown]
  - Weight increased [Unknown]
  - Sleep disorder [Unknown]
  - Gait disturbance [Unknown]
  - Arthralgia [Unknown]
  - Fear [Unknown]
